FAERS Safety Report 5488336-7 (Version None)
Quarter: 2007Q4

REPORT INFORMATION
  Report Type: 
  Country: None (occurrence: None)
  Receive Date: 20071017
  Receipt Date: 20071016
  Transmission Date: 20080405
  Serious: Yes (Other)
  Sender: FDA-Public Use
  Company Number: A0687972A

PATIENT
  Age: 54 Year
  Sex: Female

DRUGS (2)
  1. LAMICTAL [Suspect]
     Indication: BIPOLAR DISORDER
     Dosage: 75MG PER DAY
     Route: 048
     Dates: start: 20040101
  2. TRYPTOPHAN [Concomitant]

REACTIONS (6)
  - ADVERSE EVENT [None]
  - BORDERLINE GLAUCOMA [None]
  - OPTIC NERVE DISORDER [None]
  - THERAPEUTIC RESPONSE UNEXPECTED [None]
  - VISION BLURRED [None]
  - VISUAL ACUITY REDUCED [None]
